FAERS Safety Report 25610076 (Version 1)
Quarter: 2025Q3

REPORT INFORMATION
  Report Type: Spontaneous
  Country: GB (occurrence: GB)
  Receive Date: 20250728
  Receipt Date: 20250728
  Transmission Date: 20251021
  Serious: Yes (Other)
  Sender: SANDOZ
  Company Number: GB-SANDOZ-SDZ2025GB053213

PATIENT
  Sex: Female

DRUGS (2)
  1. RANIBIZUMAB [Suspect]
     Active Substance: RANIBIZUMAB
     Indication: Age-related macular degeneration
     Route: 065
     Dates: start: 20250701, end: 20250701
  2. RANIBIZUMAB [Suspect]
     Active Substance: RANIBIZUMAB
     Indication: Macular degeneration

REACTIONS (4)
  - Paraesthesia [Recovered/Resolved]
  - Paraesthesia [Recovered/Resolved]
  - Blepharitis [Unknown]
  - Dry eye [Unknown]
